FAERS Safety Report 22870212 (Version 8)
Quarter: 2024Q2

REPORT INFORMATION
  Report Type: Spontaneous
  Country: US (occurrence: US)
  Receive Date: 20230827
  Receipt Date: 20240513
  Transmission Date: 20240716
  Serious: No
  Sender: FDA-Public Use
  Company Number: US-SA-SAC20230823001146

PATIENT
  Age: 40 Year
  Sex: Male

DRUGS (2)
  1. DUPIXENT [Suspect]
     Active Substance: DUPILUMAB
     Indication: Asthma
     Dosage: 400 MG, 1X
     Route: 058
     Dates: start: 20230721, end: 20230721
  2. DUPIXENT [Suspect]
     Active Substance: DUPILUMAB
     Dosage: 200 MG, QOW
     Route: 058
     Dates: start: 20230818

REACTIONS (16)
  - Injection site irritation [Recovered/Resolved]
  - Ingrown hair [Unknown]
  - Abdominal pain [Not Recovered/Not Resolved]
  - Gastrooesophageal reflux disease [Unknown]
  - Gastrointestinal disorder [Not Recovered/Not Resolved]
  - Abdominal pain upper [Unknown]
  - Chest discomfort [Recovering/Resolving]
  - Escherichia infection [Recovered/Resolved]
  - Discomfort [Recovered/Resolved]
  - Dysuria [Recovered/Resolved]
  - Malaise [Recovered/Resolved]
  - Gastritis [Unknown]
  - Asthma [Unknown]
  - Injection site erythema [Recovered/Resolved]
  - Drug ineffective [Unknown]
  - Inappropriate schedule of product administration [Unknown]

NARRATIVE: CASE EVENT DATE: 20230101
